FAERS Safety Report 15820496 (Version 1)
Quarter: 2018Q4

REPORT INFORMATION
  Report Type: Spontaneous
  Country: US (occurrence: US)
  Receive Date: 20181217
  Receipt Date: 20181217
  Transmission Date: 20190205
  Serious: No
  Sender: FDA-Public Use
  Company Number: None

PATIENT
  Age: 59 Year
  Sex: Female

DRUGS (2)
  1. ZITHROMAX [Suspect]
     Active Substance: AZITHROMYCIN DIHYDRATE
     Indication: UPPER RESPIRATORY TRACT INFECTION
     Dosage: ?          OTHER FREQUENCY:2X1DAY 1X4 DAYS;?
     Route: 048
     Dates: start: 20181214
  2. HYDROCODONE POLISTIREX [Suspect]
     Active Substance: HYDROCODONE POLISTIREX
     Dosage: ?          OTHER DOSE:4OZ;OTHER FREQUENCY:1TSP Q12HR;?
     Route: 048

REACTIONS (2)
  - Eye swelling [None]
  - Rash [None]

NARRATIVE: CASE EVENT DATE: 20181203
